FAERS Safety Report 8226309-1 (Version None)
Quarter: 2012Q1

REPORT INFORMATION
  Report Type: 
  Country: None (occurrence: None)
  Receive Date: 20120321
  Receipt Date: 20120306
  Transmission Date: 20120608
  Serious: Yes (Hospitalization, Other)
  Sender: FDA-Public Use
  Company Number: KR-MERCK-1203USA02542

PATIENT
  Age: 51 Year
  Sex: Male
  Weight: 53 kg

DRUGS (38)
  1. ISENTRESS [Suspect]
     Indication: HIV INFECTION
     Route: 048
     Dates: start: 20110430
  2. DEXAMETHASONE [Concomitant]
     Route: 041
     Dates: start: 20110509, end: 20110511
  3. ETHAMBUTOL HYDROCHLORIDE [Concomitant]
     Indication: PULMONARY TUBERCULOSIS
     Route: 048
     Dates: start: 20110621, end: 20111111
  4. FLUCONAZOLE [Concomitant]
     Indication: CANDIDIASIS
     Route: 048
     Dates: start: 20110528, end: 20110530
  5. GANCICLOVIR [Concomitant]
     Indication: CYTOMEGALOVIRUS OESOPHAGITIS
     Route: 042
     Dates: start: 20110426, end: 20110514
  6. ISONIAZID [Concomitant]
     Indication: PULMONARY TUBERCULOSIS
     Route: 048
     Dates: start: 20110621
  7. LEVOFLOXACIN [Concomitant]
     Indication: PNEUMOCYSTIS JIROVECI PNEUMONIA
     Route: 042
     Dates: start: 20110517, end: 20110523
  8. LOPINAVIR AND RITONAVIR [Concomitant]
     Indication: HIV INFECTION
     Route: 048
     Dates: start: 20080101, end: 20110401
  9. METFORMIN HYDROCHLORIDE [Concomitant]
     Indication: DIABETES MELLITUS
     Route: 048
     Dates: start: 20110508, end: 20110510
  10. METFORMIN HYDROCHLORIDE [Concomitant]
     Route: 048
     Dates: start: 20110909
  11. PYRIDOXINE [Concomitant]
     Indication: PULMONARY TUBERCULOSIS
     Route: 048
     Dates: start: 20110621
  12. CEFTRIAXONE SODIUM [Concomitant]
     Indication: PNEUMOCYSTIS JIROVECI PNEUMONIA
     Route: 042
     Dates: start: 20110423, end: 20110426
  13. CLINDAMYCIN HYDROCHLORIDE [Concomitant]
     Indication: PNEUMOCYSTIS JIROVECI PNEUMONIA
     Route: 048
     Dates: start: 20110426, end: 20110430
  14. METHYLPREDNISOLONE SODIUM SUCCINATE [Concomitant]
     Indication: PNEUMOCYSTIS JIROVECI PNEUMONIA
     Route: 042
     Dates: start: 20110501, end: 20110501
  15. PANTOPRAZOLE SODIUM [Concomitant]
     Indication: CYTOMEGALOVIRUS OESOPHAGITIS
     Route: 042
     Dates: start: 20110512, end: 20110524
  16. PREDNISOLONE ACETATE [Concomitant]
     Indication: PNEUMOCYSTIS JIROVECI PNEUMONIA
     Route: 048
     Dates: start: 20110506, end: 20110508
  17. AMITRIPTYLINE HYDROCHLORIDE [Concomitant]
     Indication: POLYNEUROPATHY
     Route: 048
     Dates: start: 20110909
  18. DARUNAVIR [Concomitant]
     Indication: HIV INFECTION
     Route: 048
     Dates: start: 20110430
  19. ETRAVIRINE [Concomitant]
     Indication: HIV INFECTION
     Route: 048
     Dates: start: 20110430
  20. HYDROCHLOROTHIAZIDE AND SPIRONOLACTONE [Concomitant]
     Route: 048
     Dates: start: 20110903, end: 20110909
  21. SULFAMETHOXAZOLE AND TRIMETHOPRIM [Concomitant]
     Indication: PNEUMOCYSTIS JIROVECI PNEUMONIA
     Route: 048
     Dates: start: 20110430, end: 20110501
  22. RIFABUTIN [Concomitant]
     Indication: PULMONARY TUBERCULOSIS
     Route: 048
     Dates: start: 20110621
  23. SULFAMETHOXAZOLE AND TRIMETHOPRIM [Concomitant]
     Route: 042
     Dates: start: 20110502, end: 20110516
  24. INSULIN GLARGINE [Concomitant]
     Indication: DIABETES MELLITUS
     Route: 058
     Dates: start: 20110504, end: 20110624
  25. LEVOCLOPERASTINE FENDIZOATE [Concomitant]
     Indication: PNEUMOCYSTIS JIROVECI PNEUMONIA
     Route: 048
     Dates: start: 20110429, end: 20110502
  26. MEROPENEM [Concomitant]
     Indication: PNEUMOCYSTIS JIROVECI PNEUMONIA
     Route: 042
     Dates: start: 20110508, end: 20110510
  27. METOCLOPRAMIDE HYDROCHLORIDE [Concomitant]
     Indication: CYTOMEGALOVIRUS OESOPHAGITIS
     Route: 042
     Dates: start: 20110515, end: 20110517
  28. PRIMAQUINE [Concomitant]
     Indication: PNEUMOCYSTIS JIROVECI PNEUMONIA
     Route: 048
     Dates: start: 20110425, end: 20110430
  29. CEFTRIAXONE SODIUM [Concomitant]
     Route: 042
     Dates: start: 20110429, end: 20110501
  30. INSULIN GLARGINE [Concomitant]
     Route: 058
     Dates: start: 20110625, end: 20110908
  31. RITONAVIR [Concomitant]
     Indication: HIV INFECTION
     Route: 048
     Dates: start: 20110430
  32. CODEINE PHOSPHATE [Concomitant]
     Indication: PNEUMOCYSTIS JIROVECI PNEUMONIA
     Route: 048
     Dates: start: 20110429, end: 20110430
  33. GABAPENTIN [Concomitant]
     Indication: POLYNEUROPATHY
     Route: 048
     Dates: start: 20110729
  34. PYRAZINAMIDE [Concomitant]
     Indication: PULMONARY TUBERCULOSIS
     Route: 048
     Dates: start: 20110621, end: 20111014
  35. DEXAMETHASONE [Concomitant]
     Indication: PNEUMOCYSTIS JIROVECI PNEUMONIA
     Route: 041
     Dates: start: 20110503, end: 20110505
  36. LAMIVUDINE [Concomitant]
     Indication: HIV INFECTION
     Route: 048
     Dates: start: 20080101, end: 20110101
  37. METOCLOPRAMIDE HYDROCHLORIDE [Concomitant]
     Route: 042
     Dates: start: 20110531, end: 20110603
  38. PREDNISOLONE ACETATE [Concomitant]
     Route: 048
     Dates: start: 20110502, end: 20110502

REACTIONS (9)
  - PNEUMOCYSTIS JIROVECI PNEUMONIA [None]
  - DIZZINESS [None]
  - HYPERKALAEMIA [None]
  - DIARRHOEA [None]
  - PANCYTOPENIA [None]
  - DELIRIUM [None]
  - NEUTROPENIA [None]
  - HICCUPS [None]
  - ASTHENIA [None]
